FAERS Safety Report 23327813 (Version 1)
Quarter: 2023Q4

REPORT INFORMATION
  Report Type: Spontaneous
  Country: US (occurrence: US)
  Receive Date: 20231221
  Receipt Date: 20231221
  Transmission Date: 20240110
  Serious: No
  Sender: FDA-Public Use
  Company Number: US-KYOWAKIRIN-2023KK020385

PATIENT

DRUGS (12)
  1. CRYSVITA [Suspect]
     Active Substance: BUROSUMAB-TWZA
     Indication: Hereditary hypophosphataemic rickets
     Dosage: 75 MG, 1X/2 WEEKS
     Route: 058
     Dates: start: 20190109
  2. CRYSVITA [Suspect]
     Active Substance: BUROSUMAB-TWZA
     Dosage: 75 MG, 1X/2 WEEKS
     Route: 058
     Dates: start: 20191028
  3. CRYSVITA [Suspect]
     Active Substance: BUROSUMAB-TWZA
     Dosage: 75 MG, 1X/2 WEEKS
     Route: 058
     Dates: start: 20231016
  4. CRYSVITA [Suspect]
     Active Substance: BUROSUMAB-TWZA
     Dosage: 75 MG, 1X/2 WEEKS
     Route: 058
     Dates: start: 20231127
  5. CRYSVITA [Suspect]
     Active Substance: BUROSUMAB-TWZA
     Dosage: 75 MG, 1X/2 WEEKS
     Route: 058
     Dates: start: 20231218
  6. CRYSVITA [Suspect]
     Active Substance: BUROSUMAB-TWZA
     Indication: Hereditary hypophosphataemic rickets
     Dosage: 75 MG, 1X/2 WEEKS
     Route: 058
     Dates: start: 20190109
  7. CRYSVITA [Suspect]
     Active Substance: BUROSUMAB-TWZA
     Dosage: 75 MG, 1X/2 WEEKS
     Route: 058
     Dates: start: 20191028
  8. CRYSVITA [Suspect]
     Active Substance: BUROSUMAB-TWZA
     Dosage: 75 MG, 1X/2 WEEKS
     Route: 058
     Dates: start: 20231016
  9. CRYSVITA [Suspect]
     Active Substance: BUROSUMAB-TWZA
     Dosage: 75 MG, 1X/2 WEEKS
     Route: 058
     Dates: start: 20231127
  10. CRYSVITA [Suspect]
     Active Substance: BUROSUMAB-TWZA
     Dosage: 75 MG, 1X/2 WEEKS
     Route: 058
     Dates: start: 20231218
  11. CRYSVITA [Concomitant]
     Active Substance: BUROSUMAB-TWZA
     Indication: Product used for unknown indication
     Dosage: UNK
     Route: 065
  12. VITAMIN D NOS [Concomitant]
     Active Substance: VITAMIN D NOS
     Indication: Product used for unknown indication
     Dosage: UNK
     Route: 065

REACTIONS (2)
  - Blood phosphorus decreased [Unknown]
  - Inappropriate schedule of product administration [Recovered/Resolved]

NARRATIVE: CASE EVENT DATE: 20231025
